FAERS Safety Report 12565286 (Version 1)
Quarter: 2016Q3

REPORT INFORMATION
  Report Type: Spontaneous
  Country: US (occurrence: US)
  Receive Date: 20160718
  Receipt Date: 20160718
  Transmission Date: 20161109
  Serious: No
  Sender: FDA-Public Use
  Company Number: US-PFIZER INC-2016308347

PATIENT
  Age: 72 Year
  Sex: Male
  Weight: 75 kg

DRUGS (2)
  1. TIKOSYN [Suspect]
     Active Substance: DOFETILIDE
     Indication: HEART RATE IRREGULAR
     Dosage: 500 UG, UNK
     Dates: start: 20160614, end: 20160617
  2. TIKOSYN [Suspect]
     Active Substance: DOFETILIDE
     Indication: ATRIAL FIBRILLATION

REACTIONS (4)
  - Asthenia [Unknown]
  - Heart rate irregular [Not Recovered/Not Resolved]
  - Drug ineffective [Unknown]
  - Condition aggravated [Not Recovered/Not Resolved]
